FAERS Safety Report 16233053 (Version 3)
Quarter: 2019Q3

REPORT INFORMATION
  Report Type: Spontaneous
  Country: US (occurrence: US)
  Receive Date: 20190424
  Receipt Date: 20190717
  Transmission Date: 20191004
  Serious: No
  Sender: FDA-Public Use
  Company Number: US-PFIZER INC-2019169831

PATIENT
  Age: 60 Year
  Sex: Female
  Weight: 136 kg

DRUGS (3)
  1. GABAPENTIN. [Suspect]
     Active Substance: GABAPENTIN
     Dosage: 600 MG, THREE TIMES A DAY
  2. GABAPENTIN. [Suspect]
     Active Substance: GABAPENTIN
     Indication: NEUROPATHY PERIPHERAL
     Dosage: UNK, TWO TIMES A DAY
  3. GABAPENTIN. [Suspect]
     Active Substance: GABAPENTIN
     Dosage: 900 MG, ONCE A DAY (300MG THREE A DAY AT ONE TIME)

REACTIONS (2)
  - Pain [Unknown]
  - Drug ineffective for unapproved indication [Unknown]
